FAERS Safety Report 5095346-0 (Version None)
Quarter: 2006Q3

REPORT INFORMATION
  Report Type: 
  Country: None (occurrence: None)
  Receive Date: 20060901
  Receipt Date: 20060821
  Transmission Date: 20061208
  Serious: Yes (Other)
  Sender: FDA-Public Use
  Company Number: 2006GB01462

PATIENT
  Sex: Male
  Weight: 91 kg

DRUGS (6)
  1. CRESTOR [Suspect]
     Route: 048
     Dates: start: 20060314, end: 20060322
  2. BETAMETHASONE [Concomitant]
     Route: 047
     Dates: start: 20020227
  3. CELECOXIB [Concomitant]
     Route: 048
     Dates: start: 20050110
  4. MOMETASONE [Concomitant]
     Route: 045
     Dates: start: 20050110
  5. ACETAMINOPHEN [Concomitant]
     Route: 048
     Dates: start: 20051121
  6. SULFASALAZINE [Concomitant]
     Route: 048
     Dates: start: 20040614

REACTIONS (1)
  - SWELLING FACE [None]
